FAERS Safety Report 5060822-3 (Version None)
Quarter: 2006Q3

REPORT INFORMATION
  Report Type: 
  Country: None (occurrence: None)
  Receive Date: 20060725
  Receipt Date: 20060412
  Transmission Date: 20061208
  Serious: Yes (Hospitalization)
  Sender: FDA-Public Use
  Company Number: PHBS2006NL05437

PATIENT
  Age: 62 Year
  Sex: Male

DRUGS (4)
  1. GLEEVEC [Suspect]
     Indication: CHRONIC MYELOID LEUKAEMIA
     Dosage: 400 MG/D
     Route: 048
     Dates: start: 20020218
  2. ACETYLSALICYLIC ACID SRT [Concomitant]
     Dosage: 80 MG/D
     Dates: start: 20031211
  3. SIMVASTATIN [Concomitant]
     Dosage: 20 MG/D
     Dates: start: 20031211, end: 20041214
  4. PLAVIX [Concomitant]
     Dosage: 70 MG/D
     Dates: start: 20031211, end: 20040111

REACTIONS (2)
  - CATARACT [None]
  - CATARACT OPERATION [None]
